FAERS Safety Report 9353521 (Version 2)
Quarter: 2013Q2

REPORT INFORMATION
  Report Type: Spontaneous
  Country: IT (occurrence: IT)
  Receive Date: 20130618
  Receipt Date: 20130618
  Transmission Date: 20140414
  Serious: Yes (Other)
  Sender: FDA-Public Use
  Company Number: IT-ELI_LILLY_AND_COMPANY-IT201303010235

PATIENT
  Age: 53 Year
  Sex: 0

DRUGS (1)
  1. DOBUTAMINE [Suspect]
     Indication: CARDIAC STRESS TEST

REACTIONS (2)
  - Ventricular arrhythmia [Unknown]
  - Ventricular extrasystoles [None]
